FAERS Safety Report 24663669 (Version 2)
Quarter: 2025Q1

REPORT INFORMATION
  Report Type: Report from Study
  Country: US (occurrence: US)
  Receive Date: 20241126
  Receipt Date: 20250131
  Transmission Date: 20250409
  Serious: No
  Sender: AMGEN
  Company Number: US-AMGEN-USASP2024229148

PATIENT
  Age: 64 Year
  Sex: Female

DRUGS (1)
  1. EVENITY [Suspect]
     Active Substance: ROMOSOZUMAB-AQQG
     Indication: Osteoporosis postmenopausal
     Dosage: UNK, QMO (2 INJECTIONS ONCE MONTHLY FOR 12 MONTHS)
     Route: 065
     Dates: start: 202312, end: 20241105

REACTIONS (3)
  - Injection site urticaria [Recovered/Resolved]
  - Injection site discomfort [Recovered/Resolved]
  - Therapeutic product effect incomplete [Recovered/Resolved]

NARRATIVE: CASE EVENT DATE: 20230101
